FAERS Safety Report 19447018 (Version 1)
Quarter: 2021Q2

REPORT INFORMATION
  Report Type: Spontaneous
  Country: US (occurrence: US)
  Receive Date: 20210622
  Receipt Date: 20210622
  Transmission Date: 20210717
  Serious: No
  Sender: FDA-Public Use
  Company Number: US-HIKMA PHARMACEUTICALS USA INC.-US-H14001-20-05582

PATIENT
  Age: 65 Year
  Sex: Female
  Weight: 70.29 kg

DRUGS (2)
  1. FLUTICASONE. [Suspect]
     Active Substance: FLUTICASONE
     Indication: NASAL CONGESTION
     Dosage: TWO SPRAYS IN LEFT AND ONE IN RIGHT NOSTRIL
     Route: 045
     Dates: start: 20201202
  2. FLUTICASONE. [Suspect]
     Active Substance: FLUTICASONE
     Indication: NASAL SEPTUM DEVIATION
     Dosage: TWO SPRAYS IN LEFT AND ONE IN RIGHT NOSTRIL
     Route: 045
     Dates: start: 20160701

REACTIONS (3)
  - Overdose [Unknown]
  - Product use in unapproved indication [Unknown]
  - Incorrect product administration duration [Unknown]
